FAERS Safety Report 12425339 (Version 1)
Quarter: 2016Q2

REPORT INFORMATION
  Report Type: Spontaneous
  Country: US (occurrence: US)
  Receive Date: 20160601
  Receipt Date: 20160601
  Transmission Date: 20160815
  Serious: No
  Sender: FDA-Public Use
  Company Number: US-ZYDUS-009086

PATIENT
  Age: 37 Year
  Sex: Male

DRUGS (2)
  1. COBICISTAT + ELVITEGRAVIR + EMTRICITABINE + TENOFOVIR [Concomitant]
     Indication: PRODUCT USED FOR UNKNOWN INDICATION
  2. MORPHINE [Suspect]
     Active Substance: MORPHINE
     Indication: PAIN
     Dosage: 90 MG TOTAL IN THREE DIVIDED DOSE
     Dates: start: 201509

REACTIONS (4)
  - Nausea [Not Recovered/Not Resolved]
  - Hot flush [Not Recovered/Not Resolved]
  - Dizziness [Not Recovered/Not Resolved]
  - Hyperhidrosis [Not Recovered/Not Resolved]
